FAERS Safety Report 18581420 (Version 2)
Quarter: 2020Q4

REPORT INFORMATION
  Report Type: Spontaneous
  Country: CN (occurrence: CN)
  Receive Date: 20201204
  Receipt Date: 20201217
  Transmission Date: 20210114
  Serious: No
  Sender: FDA-Public Use
  Company Number: CN-ELI_LILLY_AND_COMPANY-CN202011011179

PATIENT
  Age: 76 Year
  Sex: Female
  Weight: 41 kg

DRUGS (7)
  1. HUMULIN 70/30 [Suspect]
     Active Substance: INSULIN HUMAN
     Dosage: 16 U, EACH MORNING
     Route: 058
  2. YI KAI [Concomitant]
     Indication: PRODUCT USED FOR UNKNOWN INDICATION
     Dosage: UNK
  3. GLUCOSAMINE HYDROCHLORIDE [Concomitant]
     Active Substance: GLUCOSAMINE HYDROCHLORIDE
     Indication: PRODUCT USED FOR UNKNOWN INDICATION
  4. FA NENG [Concomitant]
     Indication: PRODUCT USED FOR UNKNOWN INDICATION
  5. HUMULIN 70/30 [Suspect]
     Active Substance: INSULIN HUMAN
     Indication: DIABETES MELLITUS
     Dosage: UNK UNK, UNKNOWN
     Route: 058
     Dates: start: 2005
  6. HUMULIN 70/30 [Suspect]
     Active Substance: INSULIN HUMAN
     Dosage: 8 U, EACH EVENING
     Route: 058
  7. ROSUVASTATIN. [Concomitant]
     Active Substance: ROSUVASTATIN
     Indication: PRODUCT USED FOR UNKNOWN INDICATION
     Dosage: UNK

REACTIONS (7)
  - Insomnia [Unknown]
  - Liver disorder [Unknown]
  - Renal impairment [Not Recovered/Not Resolved]
  - Discomfort [Not Recovered/Not Resolved]
  - Protein urine present [Not Recovered/Not Resolved]
  - Incorrect dose administered [Not Recovered/Not Resolved]
  - Hypertension [Not Recovered/Not Resolved]

NARRATIVE: CASE EVENT DATE: 2016
